FAERS Safety Report 9803650 (Version 1)
Quarter: 2014Q1

REPORT INFORMATION
  Report Type: Spontaneous
  Country: US (occurrence: US)
  Receive Date: 20140108
  Receipt Date: 20140108
  Transmission Date: 20141002
  Serious: No
  Sender: FDA-Public Use
  Company Number: US-GLAXOSMITHKLINE-A1019277A

PATIENT
  Age: 74 Year
  Sex: Female

DRUGS (9)
  1. LOVAZA [Suspect]
     Indication: BLOOD CHOLESTEROL INCREASED
     Dosage: 1CAP TWICE PER DAY
     Route: 048
     Dates: start: 2012
  2. NEURONTIN [Concomitant]
  3. ESTRADIOL [Concomitant]
  4. LOSARTAN [Concomitant]
  5. VITAMIN D [Concomitant]
  6. CALCIUM [Concomitant]
  7. MULTIVITAMIN [Concomitant]
  8. ASPIRIN [Concomitant]
  9. WELCHOL [Concomitant]

REACTIONS (1)
  - Blood triglycerides increased [Unknown]
